FAERS Safety Report 8308851-8 (Version None)
Quarter: 2012Q2

REPORT INFORMATION
  Report Type: 
  Country: None (occurrence: None)
  Receive Date: 20120421
  Receipt Date: 20120421
  Transmission Date: 20120825
  Serious: Yes (Hospitalization)
  Sender: FDA-Public Use
  Company Number: None

PATIENT
  Sex: Male
  Weight: 74.55 kg

DRUGS (6)
  1. PROTONIX [Concomitant]
  2. CISPLATIN [Suspect]
     Dosage: 200 MG
  3. NS [Concomitant]
  4. ZOFRAM [Concomitant]
  5. PROMETHAZINE [Concomitant]
  6. ONDANSETRON [Concomitant]

REACTIONS (4)
  - HYPOPHAGIA [None]
  - VOMITING [None]
  - DEHYDRATION [None]
  - NAUSEA [None]
